FAERS Safety Report 5129382-2 (Version None)
Quarter: 2006Q4

REPORT INFORMATION
  Report Type: 
  Country: None (occurrence: None)
  Receive Date: 20061012
  Receipt Date: 20060929
  Transmission Date: 20070319
  Serious: Yes (Other)
  Sender: FDA-Public Use
  Company Number: 2006117462

PATIENT
  Age: 35 Year
  Sex: Female
  Weight: 100 kg

DRUGS (2)
  1. DEPO-MEDROL W/LIDOCAINE (LIDOCAINE HYDROCHLORIDE, METHYLPREDNISOLONE A [Suspect]
     Indication: TENOSYNOVITIS STENOSANS
     Dosage: 40 MG (40 MG, ONCE)
     Dates: start: 20060908, end: 20060908
  2. CERAZETTE (DESOGESTREL) [Concomitant]

REACTIONS (4)
  - ANAPHYLACTIC REACTION [None]
  - BURNING SENSATION [None]
  - HYPERSENSITIVITY [None]
  - PRURITUS [None]
